FAERS Safety Report 17405096 (Version 1)
Quarter: 2020Q1

REPORT INFORMATION
  Report Type: Spontaneous
  Country: US (occurrence: US)
  Receive Date: 20200212
  Receipt Date: 20200212
  Transmission Date: 20200409
  Serious: No
  Sender: FDA-Public Use
  Company Number: US-SHIRE-US202005008

PATIENT
  Sex: Female
  Weight: 65.76 kg

DRUGS (1)
  1. VYVANSE [Suspect]
     Active Substance: LISDEXAMFETAMINE DIMESYLATE
     Indication: ATTENTION DEFICIT/HYPERACTIVITY DISORDER
     Dosage: 5 MILLIGRAM, 1X/DAY:QD
     Route: 048
     Dates: start: 2015

REACTIONS (2)
  - Epistaxis [Not Recovered/Not Resolved]
  - Contusion [Unknown]
